FAERS Safety Report 6015783-7 (Version None)
Quarter: 2008Q4

REPORT INFORMATION
  Report Type: 
  Country: None (occurrence: None)
  Receive Date: 20081219
  Receipt Date: 20081219
  Transmission Date: 20090506
  Serious: Yes (Hospitalization)
  Sender: FDA-Public Use
  Company Number: None

PATIENT
  Age: 50 Year
  Sex: Male
  Weight: 106.5953 kg

DRUGS (1)
  1. ZOLPIDEM [Suspect]
     Indication: INSOMNIA
     Dosage: 1-2 TABLETS/AT NIGHTLY AS NEEDED PO
     Route: 048

REACTIONS (7)
  - CONTUSION [None]
  - FACIAL BONES FRACTURE [None]
  - FALL [None]
  - JOINT SWELLING [None]
  - SKIN LACERATION [None]
  - SOMNAMBULISM [None]
  - WRIST FRACTURE [None]
